FAERS Safety Report 11196611 (Version 2)
Quarter: 2015Q2

REPORT INFORMATION
  Report Type: Report from Study
  Country: BG (occurrence: BG)
  Receive Date: 20150617
  Receipt Date: 20150624
  Transmission Date: 20150821
  Serious: Yes (Death)
  Sender: FDA-Public Use
  Company Number: BG-ASTRAZENECA-2015SE57286

PATIENT
  Age: 65 Year
  Sex: Male

DRUGS (7)
  1. DILATREND [Concomitant]
     Active Substance: CARVEDILOL
  2. DIURETIN [Concomitant]
  3. ATORVISTAT K [Concomitant]
  4. ACC [Concomitant]
     Active Substance: ACETYLCYSTEINE
     Dosage: 200, 2X 1 DAILY FOR 5 DAYS
  5. ASPIRIN. [Concomitant]
     Active Substance: ASPIRIN
  6. BRILIQUE [Suspect]
     Active Substance: TICAGRELOR
     Indication: ACUTE MYOCARDIAL INFARCTION
     Route: 048
     Dates: start: 20150520
  7. TRITACE [Concomitant]
     Active Substance: RAMIPRIL

REACTIONS (1)
  - Death [Fatal]
